FAERS Safety Report 6426976-9 (Version None)
Quarter: 2009Q4

REPORT INFORMATION
  Report Type: 
  Country: None (occurrence: None)
  Receive Date: 20091104
  Receipt Date: 20090715
  Transmission Date: 20100525
  Serious: No
  Sender: FDA-Public Use
  Company Number: US-BAYER-200916180BCC

PATIENT
  Age: 3 Year
  Sex: Male

DRUGS (1)
  1. ALEVE [Suspect]
     Indication: ACCIDENTAL DRUG INTAKE BY CHILD
     Dosage: UNIT DOSE: 220 MG
     Route: 048
     Dates: start: 20090715

REACTIONS (1)
  - NO ADVERSE EVENT [None]
